FAERS Safety Report 14790103 (Version 7)
Quarter: 2023Q1

REPORT INFORMATION
  Report Type: Spontaneous
  Country: CZ (occurrence: CZ)
  Receive Date: 20180423
  Receipt Date: 20230220
  Transmission Date: 20230417
  Serious: Yes (Death, Other)
  Sender: FDA-Public Use
  Company Number: CZ-MYLANLABS-2018M1025868

PATIENT
  Age: 61 Year
  Sex: Female

DRUGS (14)
  1. OXALIPLATIN [Suspect]
     Active Substance: OXALIPLATIN
     Indication: Colorectal cancer
     Dosage: FOLFOX FOLFIRI
     Route: 042
     Dates: start: 201211
  2. OXALIPLATIN [Suspect]
     Active Substance: OXALIPLATIN
     Indication: Colorectal cancer metastatic
     Dosage: UNK
     Route: 042
     Dates: start: 201406, end: 201408
  3. IRINOTECAN [Suspect]
     Active Substance: IRINOTECAN
     Indication: Colorectal cancer
     Dosage: FOLFOX FOLFIRI, CYCLE
     Route: 065
     Dates: start: 20140908
  4. IRINOTECAN [Suspect]
     Active Substance: IRINOTECAN
     Indication: Adenocarcinoma
     Dosage: FOLFOX FOLFIRI, CYCLE
     Route: 065
     Dates: start: 201409
  5. IRINOTECAN [Suspect]
     Active Substance: IRINOTECAN
     Dosage: FOLFIRI ; CYCLICAL
     Route: 065
     Dates: start: 201211
  6. IRINOTECAN [Suspect]
     Active Substance: IRINOTECAN
     Dosage: IN FOLFOX REGIMEN
     Route: 042
     Dates: start: 20140623
  7. IRINOTECAN [Suspect]
     Active Substance: IRINOTECAN
     Dosage: IN FOLFOX REGIMEN
     Route: 042
     Dates: start: 20160625, end: 201704
  8. FLUOROURACIL [Suspect]
     Active Substance: FLUOROURACIL
     Indication: Colorectal cancer
     Dosage: FOLFOX FOLFIRI, CYCLE
     Route: 065
     Dates: start: 201211
  9. FLUOROURACIL [Suspect]
     Active Substance: FLUOROURACIL
     Indication: Colorectal cancer metastatic
     Dosage: UNK
     Route: 065
     Dates: start: 201406
  10. LEUCOVORIN [Suspect]
     Active Substance: LEUCOVORIN
     Indication: Colorectal cancer
     Dosage: FOLFOX FOLFIRI, CYCLE
     Route: 065
     Dates: start: 201211
  11. LEUCOVORIN CALCIUM [Suspect]
     Active Substance: LEUCOVORIN CALCIUM
     Indication: Colorectal cancer metastatic
     Dosage: UNK
     Route: 065
     Dates: start: 201406
  12. BEVACIZUMAB [Concomitant]
     Active Substance: BEVACIZUMAB
     Indication: Colorectal cancer
     Dosage: UNK UNK, CYCLE FOLFOX FOLFIRI
     Route: 065
     Dates: start: 20140623
  13. BEVACIZUMAB [Concomitant]
     Active Substance: BEVACIZUMAB
     Dosage: 1 DOSAGE FORM, CYCLE
     Route: 042
     Dates: start: 201406, end: 201408
  14. AFLIBERCEPT [Concomitant]
     Active Substance: AFLIBERCEPT
     Indication: Product used for unknown indication
     Dosage: FOLFOX FOLFIRI
     Route: 065
     Dates: start: 20140908, end: 20160111

REACTIONS (9)
  - Disease progression [Fatal]
  - Hypertension [Recovered/Resolved]
  - Fatigue [Unknown]
  - Thrombocytopenia [Recovered/Resolved]
  - Diarrhoea [Recovered/Resolved]
  - Colorectal cancer metastatic [Unknown]
  - Adenocarcinoma [Recovered/Resolved]
  - Drug ineffective [Recovered/Resolved]
  - Off label use [Unknown]

NARRATIVE: CASE EVENT DATE: 20140101
